FAERS Safety Report 18413315 (Version 2)
Quarter: 2020Q4

REPORT INFORMATION
  Report Type: Spontaneous
  Country: US (occurrence: US)
  Receive Date: 20201022
  Receipt Date: 20201026
  Transmission Date: 20210114
  Serious: Yes (Other)
  Sender: FDA-Public Use
  Company Number: US-SA-2020SA289001

PATIENT

DRUGS (21)
  1. HYDROCORTISONE. [Suspect]
     Active Substance: HYDROCORTISONE
     Indication: ADRENOGENITAL SYNDROME
     Dosage: TID; TABLETS THAT WERE INITIALLY QUARTERED AND GIVEN 3 TIMES DAILY
  2. HYDROCORTISONE. [Suspect]
     Active Substance: HYDROCORTISONE
     Dosage: 6.6 MG/M2, QD; TABLET
  3. HYDROCORTISONE. [Suspect]
     Active Substance: HYDROCORTISONE
     Dosage: Q6H; SPLIT INTO 4 DOSES A DAY EVERY 6 HOURS STARTING AT 6 AM; TABLET
  4. HYDROCORTISONE. [Suspect]
     Active Substance: HYDROCORTISONE
     Dosage: 6.5 MG/M2, QD; TABLET
  5. AMLODIPINE [Concomitant]
     Active Substance: AMLODIPINE BESYLATE
     Indication: HYPERTENSION
     Dosage: 2.5 MG, QD
  6. AMLODIPINE [Concomitant]
     Active Substance: AMLODIPINE BESYLATE
     Dosage: HIGHER DOSES OF AMLODIPINE (5 MG TO 7.5 MG)
  7. HYDROCORTISONE. [Suspect]
     Active Substance: HYDROCORTISONE
     Dosage: 10-MG/10-ML SOLUTION USING 2 5-MG TABLETS
  8. CAPTOPRIL. [Concomitant]
     Active Substance: CAPTOPRIL
     Indication: HYPERTENSION
     Dosage: 15 MG
  9. AMLODIPINE [Concomitant]
     Active Substance: AMLODIPINE BESYLATE
     Dosage: 3 MG
  10. HYDROCORTISONE. [Suspect]
     Active Substance: HYDROCORTISONE
     Dosage: FURTHER REDUCED DOSES IN FOLLOWING MONTHS
  11. HYDROCORTISONE. [Suspect]
     Active Substance: HYDROCORTISONE
     Dosage: 12.2 MG/M2, QD; TABLET
  12. FLUDROCORTISONE [Concomitant]
     Active Substance: FLUDROCORTISONE
     Indication: ADRENOGENITAL SYNDROME
     Dosage: 0.1 MG, QD
  13. HYDROCORTISONE. [Suspect]
     Active Substance: HYDROCORTISONE
     Dosage: 7.1 MG/M2, QD; TABLET
  14. FLUDROCORTISONE [Concomitant]
     Active Substance: FLUDROCORTISONE
     Dosage: 0.1 MG, QD
  15. SODIUM CHLORIDE. [Concomitant]
     Active Substance: SODIUM CHLORIDE
     Dosage: UNK, QD; 10.2 MEQ/KG/DAY
  16. HYDROCORTISONE. [Suspect]
     Active Substance: HYDROCORTISONE
     Dosage: DOSES TITRATED ACCORDINGLY; TABLET
  17. HYDROCORTISONE. [Suspect]
     Active Substance: HYDROCORTISONE
     Dosage: 8.1 MG/M2, QD (2 MG HYDROCORTISONE AT 6 AM, 1.75 MG AT NOON, 1.5 MG AT 6 PM, AND 2 MG AT MIDNIGHT);
  18. FLUDROCORTISONE [Concomitant]
     Active Substance: FLUDROCORTISONE
     Dosage: 0.05 MG, QD
  19. HYDROCORTISONE. [Suspect]
     Active Substance: HYDROCORTISONE
     Dosage: TID; DAILY DOSES RANGED BETWEEN 4.35 AND 5.8 MG/M2/DAY DIVIDED 3 TIMES DAILY; TABLET
  20. AMLODIPINE [Concomitant]
     Active Substance: AMLODIPINE BESYLATE
     Dosage: 7.5 MG AT INITIAL PRESENTATION TO THE CLINIC
  21. HYDROCORTISONE. [Suspect]
     Active Substance: HYDROCORTISONE
     Dosage: 7.9 MG/M2, QD; TABLET

REACTIONS (9)
  - Gastric ulcer [Recovered/Resolved]
  - Hypertrichosis [Recovered/Resolved]
  - Lipohypertrophy [Recovered/Resolved]
  - Cushingoid [Recovered/Resolved]
  - Wrong technique in product usage process [Recovered/Resolved]
  - Affect lability [Recovered/Resolved]
  - Pituitary-dependent Cushing^s syndrome [Recovered/Resolved]
  - Growth retardation [Recovered/Resolved]
  - Asthenia [Recovered/Resolved]
